FAERS Safety Report 6849383-3 (Version None)
Quarter: 2010Q3

REPORT INFORMATION
  Report Type: 
  Country: None (occurrence: None)
  Receive Date: 20100716
  Receipt Date: 20071113
  Transmission Date: 20110219
  Serious: Yes (Other)
  Sender: FDA-Public Use
  Company Number: US-PFIZER INC-2007082949

PATIENT

DRUGS (1)
  1. CHANTIX [Suspect]

REACTIONS (3)
  - ASTHENIA [None]
  - DISSOCIATION [None]
  - HEART RATE DECREASED [None]
